FAERS Safety Report 7799817-5 (Version None)
Quarter: 2011Q4

REPORT INFORMATION
  Report Type: 
  Country: None (occurrence: None)
  Receive Date: 20111006
  Receipt Date: 20110927
  Transmission Date: 20120403
  Serious: Yes (Death, Hospitalization, Other)
  Sender: FDA-Public Use
  Company Number: US-AMGEN-USASP2011050367

PATIENT
  Age: 68 Year
  Sex: Female
  Weight: 52.154 kg

DRUGS (3)
  1. PROCRIT [Suspect]
     Indication: RED BLOOD CELL COUNT DECREASED
     Dosage: UNK
     Dates: start: 20110601, end: 20110101
  2. PREDNISONE [Concomitant]
     Dosage: UNK
     Dates: start: 20110401
  3. ULORIC [Concomitant]
     Indication: GOUT
     Dosage: UNK
     Dates: start: 20110401

REACTIONS (5)
  - HYPOAESTHESIA [None]
  - CEREBROVASCULAR ACCIDENT [None]
  - LYMPHOMA [None]
  - VISION BLURRED [None]
  - VIITH NERVE PARALYSIS [None]
